FAERS Safety Report 19071958 (Version 1)
Quarter: 2021Q1

REPORT INFORMATION
  Report Type: Spontaneous
  Country: US (occurrence: US)
  Receive Date: 20210329
  Receipt Date: 20210329
  Transmission Date: 20210420
  Serious: No
  Sender: FDA-Public Use
  Company Number: None

PATIENT
  Age: 12 Year
  Sex: Male
  Weight: 63.8 kg

DRUGS (1)
  1. BAMLANIVIMAB. [Suspect]
     Active Substance: BAMLANIVIMAB
     Indication: COVID-19
     Route: 042
     Dates: start: 20210131

REACTIONS (4)
  - Diarrhoea [None]
  - Failure to thrive [None]
  - Gastrointestinal disorder [None]
  - Gastrointestinal pain [None]

NARRATIVE: CASE EVENT DATE: 20210131
